FAERS Safety Report 14256532 (Version 3)
Quarter: 2017Q4

REPORT INFORMATION
  Report Type: Spontaneous
  Country: FR (occurrence: FR)
  Receive Date: 20171206
  Receipt Date: 20171212
  Transmission Date: 20180321
  Serious: Yes (Life-Threatening, Hospitalization, Other)
  Sender: FDA-Public Use
  Company Number: FR-TEVA-2017-FR-831491

PATIENT
  Age: 57 Year
  Sex: Female

DRUGS (2)
  1. IRINOTECAN [Suspect]
     Active Substance: IRINOTECAN
     Indication: ALVEOLAR RHABDOMYOSARCOMA
     Dosage: 50 MG/M2 DAILY;
     Route: 042
  2. TEMOZOLOMIDE. [Concomitant]
     Active Substance: TEMOZOLOMIDE

REACTIONS (13)
  - Stomatitis [Unknown]
  - Diverticulitis [Unknown]
  - Hepatocellular injury [Unknown]
  - Toxicity to various agents [Unknown]
  - Vomiting [Unknown]
  - Diarrhoea [Recovered/Resolved]
  - Septic shock [Unknown]
  - Thrombocytopenia [Unknown]
  - Anaemia [Unknown]
  - Enteritis [Unknown]
  - Prerenal failure [Unknown]
  - Neutropenia [Recovered/Resolved]
  - Dehydration [Unknown]
